FAERS Safety Report 4599494-0 (Version None)
Quarter: 2005Q1

REPORT INFORMATION
  Report Type: 
  Country: None (occurrence: None)
  Receive Date: 20050303
  Receipt Date: 20050210
  Transmission Date: 20050727
  Serious: Yes (Other)
  Sender: FDA-Public Use
  Company Number: USA050289721

PATIENT
  Age: 48 Year
  Sex: Female
  Weight: 52 kg

DRUGS (7)
  1. STRATTERA [Suspect]
     Dosage: 25 MG DAY
     Dates: start: 20050201
  2. ZYPREXA [Suspect]
     Indication: DEPRESSION
     Dosage: 10 MG DAY
     Dates: start: 20041101
  3. STRATTERA [Concomitant]
  4. LEXAPRO [Concomitant]
  5. EFFEXOR [Concomitant]
  6. CYTOMEL [Concomitant]
  7. CAFFEINE [Concomitant]

REACTIONS (9)
  - ABNORMAL DREAMS [None]
  - ANXIETY [None]
  - DISEASE RECURRENCE [None]
  - DRUG EFFECT DECREASED [None]
  - INSOMNIA [None]
  - PHARMACEUTICAL PRODUCT COMPLAINT [None]
  - SOMNOLENCE [None]
  - THINKING ABNORMAL [None]
  - WEIGHT INCREASED [None]
